FAERS Safety Report 9074913 (Version 4)
Quarter: 2013Q1

REPORT INFORMATION
  Report Type: Spontaneous
  Country: DE (occurrence: DE)
  Receive Date: 20130129
  Receipt Date: 20130326
  Transmission Date: 20140127
  Serious: Yes (Hospitalization)
  Sender: FDA-Public Use
  Company Number: DE-BRISTOL-MYERS SQUIBB COMPANY-17315466

PATIENT
  Age: 77 Year
  Sex: Female
  Weight: 80 kg

DRUGS (10)
  1. ELIQUIS [Suspect]
     Indication: HYPERTENSION
     Dosage: FILM COATED TABS?TWICE OF 2.5MG SINCE 3WKS
     Route: 048
     Dates: start: 20121217
  2. ELIQUIS [Suspect]
     Indication: ATRIAL FIBRILLATION
     Dosage: FILM COATED TABS?TWICE OF 2.5MG SINCE 3WKS
     Route: 048
     Dates: start: 20121217
  3. VALSARTAN [Suspect]
     Indication: HYPERTENSION
     Route: 048
  4. TORASEMIDE [Suspect]
     Indication: HYPERTENSION
     Route: 048
  5. HYDROCHLOROTHIAZIDE [Suspect]
     Route: 048
  6. VITAMIN D [Concomitant]
     Route: 048
  7. METOPROLOL [Concomitant]
     Route: 048
  8. EBRANTIL [Concomitant]
     Dosage: EBRANTIL 30
     Dates: start: 201211
  9. AMLODIPINE [Concomitant]
  10. VITAMIN B [Concomitant]

REACTIONS (1)
  - Renal failure acute [Recovered/Resolved]
